FAERS Safety Report 23393847 (Version 3)
Quarter: 2024Q1

REPORT INFORMATION
  Report Type: Spontaneous
  Country: FR (occurrence: FR)
  Receive Date: 20240111
  Receipt Date: 20240116
  Transmission Date: 20240409
  Serious: Yes (Other)
  Sender: FDA-Public Use
  Company Number: FR-SA-SAC20231128000625

PATIENT
  Age: 4 Year
  Sex: Male
  Weight: 15 kg

DRUGS (7)
  1. VINCRISTINE SULFATE [Suspect]
     Active Substance: VINCRISTINE SULFATE
     Indication: Leukaemia
     Dosage: FREQ:{TOTAL};0.33 MG, 1X
     Route: 042
     Dates: start: 20230527, end: 20230527
  2. VINCRISTINE SULFATE [Suspect]
     Active Substance: VINCRISTINE SULFATE
     Dosage: FREQ:{TOTAL};0.98 MG, 1X
     Route: 042
     Dates: start: 20230603, end: 20230603
  3. METHOTREXATE SODIUM [Suspect]
     Active Substance: METHOTREXATE SODIUM
     Indication: Leukaemia
     Dosage: FREQ:{TOTAL};15 MG, 1X
     Dates: start: 20230106, end: 20230106
  4. DEXAMETHASONE [Suspect]
     Active Substance: DEXAMETHASONE
     Indication: Leukaemia
     Dosage: FREQ:12 H;6.5 MG, BID
     Route: 048
     Dates: start: 20230525, end: 20230529
  5. PEGASPARGASE [Suspect]
     Active Substance: PEGASPARGASE
     Indication: Leukaemia
     Dosage: FREQ:{TOTAL};6500 IU, 1X
     Route: 042
     Dates: start: 20230527, end: 20230527
  6. MITOXANTRONE HYDROCHLORIDE [Suspect]
     Active Substance: MITOXANTRONE HYDROCHLORIDE
     Indication: Leukaemia
     Dosage: FREQ:{TOTAL};6.5 MG, 1X
     Route: 042
     Dates: start: 20230526, end: 20230526
  7. CASPOFUNGIN [Concomitant]
     Active Substance: CASPOFUNGIN
     Indication: Infection prophylaxis
     Dosage: UNK
     Route: 042
     Dates: start: 20230529

REACTIONS (1)
  - Sepsis [Recovered/Resolved]

NARRATIVE: CASE EVENT DATE: 20230406
